FAERS Safety Report 25599850 (Version 1)
Quarter: 2025Q3

REPORT INFORMATION
  Report Type: Other
  Country: EU (occurrence: EU)
  Receive Date: 20250724
  Receipt Date: 20250724
  Transmission Date: 20251020
  Serious: Yes (Hospitalization, Other)
  Sender: BIOCON
  Company Number: EU-EMA-2025710-AUTODUP-1752183541476

PATIENT

DRUGS (2)
  1. ADALIMUMAB [Suspect]
     Active Substance: ADALIMUMAB
     Indication: Spondyloarthropathy
     Route: 065
  2. ETANERCEPT [Suspect]
     Active Substance: ETANERCEPT
     Indication: Spondyloarthropathy
     Route: 065

REACTIONS (5)
  - Cutaneous T-cell lymphoma [Unknown]
  - Rhabdomyolysis [Unknown]
  - Myopathy [Unknown]
  - Anaemia [Unknown]
  - Drug tolerance decreased [Unknown]
